FAERS Safety Report 14941858 (Version 1)
Quarter: 2018Q2

REPORT INFORMATION
  Report Type: Report from Study
  Country: MX (occurrence: MX)
  Receive Date: 20180527
  Receipt Date: 20180527
  Transmission Date: 20180711
  Serious: Yes (Hospitalization)
  Sender: FDA-Public Use
  Company Number: PHHY2018MX006406

PATIENT
  Age: 81 Year
  Sex: Male

DRUGS (3)
  1. AMIODARONE [Concomitant]
     Active Substance: AMIODARONE
     Indication: CARDIAC DISORDER
     Dosage: 200 MG, QD
     Dates: start: 19050704
  2. EXFORGE [Suspect]
     Active Substance: AMLODIPINE BESYLATE\VALSARTAN
     Indication: BLOOD PRESSURE INCREASED
     Dosage: 1.5 DF (AMLODIPINE 5 MG, VALSARTAN 160 MG), QD (1IN THE MORNING AND ? IN THE NIGHT)
     Route: 048
     Dates: start: 20050704
  3. ATORVASTATIN [Concomitant]
     Active Substance: ATORVASTATIN
     Indication: PROPHYLAXIS
     Dosage: 1 DF, QD
     Dates: start: 201802

REACTIONS (7)
  - Wrong technique in product usage process [Unknown]
  - Drug prescribing error [Unknown]
  - Lung disorder [Unknown]
  - Blood pressure diastolic increased [Unknown]
  - Aortic disorder [Unknown]
  - Blood pressure diastolic decreased [Unknown]
  - Cardiac disorder [Unknown]

NARRATIVE: CASE EVENT DATE: 20180401
